FAERS Safety Report 10495040 (Version 1)
Quarter: 2014Q4

REPORT INFORMATION
  Report Type: Spontaneous
  Country: US (occurrence: US)
  Receive Date: 20141003
  Receipt Date: 20141003
  Transmission Date: 20150528
  Serious: No
  Sender: FDA-Public Use
  Company Number: US-MYLANLABS-2014S1002138

PATIENT
  Age: 19 Year
  Sex: Female

DRUGS (5)
  1. ADDERALL [Concomitant]
     Active Substance: AMPHETAMINE ASPARTATE\AMPHETAMINE SULFATE\DEXTROAMPHETAMINE SACCHARATE\DEXTROAMPHETAMINE SULFATE
     Indication: ATTENTION DEFICIT/HYPERACTIVITY DISORDER
     Dosage: 20 MG,QD
     Route: 048
     Dates: start: 201308
  2. ANTI-ASTHMATICS [Concomitant]
     Active Substance: UNSPECIFIED INGREDIENT
     Indication: ASTHMA
     Dosage: UNK UNK,PRN
     Route: 048
     Dates: start: 2012
  3. CLINDAMYCIN - BENZOYL PEROXIDE [Suspect]
     Active Substance: BENZOYL PEROXIDE\CLINDAMYCIN PHOSPHATE
     Indication: ACNE
     Dosage: UNK UNK,ONCE
     Route: 061
     Dates: start: 20140128, end: 20140128
  4. CLINDAMYCIN - BENZOYL PEROXIDE [Suspect]
     Active Substance: BENZOYL PEROXIDE\CLINDAMYCIN PHOSPHATE
     Dosage: UNK UNK,ONCE
     Route: 061
     Dates: start: 20140128, end: 20140128
  5. SPRINTEC [Concomitant]
     Active Substance: ETHINYL ESTRADIOL\NORGESTIMATE
     Indication: CONTRACEPTION
     Dosage: UNK UNK,QD
     Route: 048
     Dates: start: 2012

REACTIONS (2)
  - Application site pain [Recovering/Resolving]
  - Application site erythema [Recovering/Resolving]

NARRATIVE: CASE EVENT DATE: 20140128
